FAERS Safety Report 4747119-3 (Version None)
Quarter: 2005Q3

REPORT INFORMATION
  Report Type: 
  Country: None (occurrence: None)
  Receive Date: 20050815
  Receipt Date: 20050801
  Transmission Date: 20060218
  Serious: Yes (Other)
  Sender: FDA-Public Use
  Company Number: 2005-0008592

PATIENT
  Age: 30 Year
  Sex: Female

DRUGS (3)
  1. TRUVADA [Suspect]
     Indication: HIV INFECTION
     Dosage: SEE IMAGE
     Dates: start: 20020710, end: 20040805
  2. TRUVADA [Suspect]
     Indication: HIV INFECTION
     Dosage: SEE IMAGE
     Dates: start: 20040830, end: 20050527
  3. SUSTIVA [Concomitant]

REACTIONS (3)
  - ABORTION SPONTANEOUS [None]
  - DRUG EXPOSURE DURING PREGNANCY [None]
  - PREGNANCY ON ORAL CONTRACEPTIVE [None]
